FAERS Safety Report 15343899 (Version 6)
Quarter: 2021Q3

REPORT INFORMATION
  Report Type: Report from Study
  Country: CA (occurrence: CA)
  Receive Date: 20180903
  Receipt Date: 20210813
  Transmission Date: 20211014
  Serious: Yes (Other)
  Sender: FDA-Public Use
  Company Number: PHHY2015CA160800

PATIENT
  Age: 17 Year
  Sex: Female

DRUGS (3)
  1. ILARIS [Suspect]
     Active Substance: CANAKINUMAB
     Dosage: 150 MG, Q 4WEEKS
     Route: 058
     Dates: start: 20180918
  2. ILARIS [Suspect]
     Active Substance: CANAKINUMAB
     Indication: MUCKLE-WELLS SYNDROME
     Dosage: 150 MG, Q4 WEEKS FOR 3 MONTHS, THEN Q8 WEEKS
     Route: 058
     Dates: start: 20151103
  3. ILARIS [Suspect]
     Active Substance: CANAKINUMAB
     Dosage: UNK
     Route: 065
     Dates: start: 201704, end: 201704

REACTIONS (22)
  - Lower respiratory tract infection [Unknown]
  - Illness [Unknown]
  - Myalgia [Unknown]
  - Diarrhoea [Not Recovered/Not Resolved]
  - Contusion [Recovered/Resolved]
  - Cough [Unknown]
  - Muckle-Wells syndrome [Unknown]
  - Headache [Unknown]
  - Nausea [Unknown]
  - Fatigue [Recovering/Resolving]
  - Disease progression [Unknown]
  - Pyrexia [Unknown]
  - Blood test abnormal [Unknown]
  - Arthralgia [Recovered/Resolved]
  - Arthralgia [Unknown]
  - Insomnia [Not Recovered/Not Resolved]
  - Influenza [Not Recovered/Not Resolved]
  - Immune system disorder [Unknown]
  - Feeling abnormal [Unknown]
  - Influenza like illness [Unknown]
  - Constipation [Recovered/Resolved]
  - Nasopharyngitis [Unknown]

NARRATIVE: CASE EVENT DATE: 201511
